FAERS Safety Report 12861991 (Version 1)
Quarter: 2016Q4

REPORT INFORMATION
  Report Type: Spontaneous
  Country: US (occurrence: US)
  Receive Date: 20161018
  Receipt Date: 20161018
  Transmission Date: 20170207
  Serious: Yes (Other)
  Sender: FDA-Public Use
  Company Number: None

PATIENT
  Age: 62 Year
  Sex: Female
  Weight: 52.21 kg

DRUGS (6)
  1. LIALDA [Suspect]
     Active Substance: MESALAMINE
     Indication: COLITIS ULCERATIVE
     Dosage: LIALDA 1.2 GRAMS - 2 PILLS - INCREASED TO 4 PILLS - PO - QD - 2AM + 2PM
     Route: 048
     Dates: start: 201608, end: 20160926
  2. BIOTIN [Concomitant]
     Active Substance: BIOTIN
  3. PREDNISONE. [Concomitant]
     Active Substance: PREDNISONE
  4. WELLBUTRIN [Concomitant]
     Active Substance: BUPROPION HYDROCHLORIDE
  5. APRISO [Concomitant]
     Active Substance: MESALAMINE
  6. FOLIC ACID. [Concomitant]
     Active Substance: FOLIC ACID

REACTIONS (1)
  - Alopecia [None]

NARRATIVE: CASE EVENT DATE: 20160926
